FAERS Safety Report 12580686 (Version 1)
Quarter: 2016Q3

REPORT INFORMATION
  Report Type: Spontaneous
  Country: AU (occurrence: AU)
  Receive Date: 20160721
  Receipt Date: 20160721
  Transmission Date: 20161109
  Serious: Yes (Hospitalization)
  Sender: FDA-Public Use
  Company Number: AU-SA-2016SA132437

PATIENT
  Age: 89 Year
  Sex: Female

DRUGS (7)
  1. HYDROCHLOROTHIAZIDE. [Suspect]
     Active Substance: HYDROCHLOROTHIAZIDE
     Route: 065
  2. ATENOLOL. [Suspect]
     Active Substance: ATENOLOL
     Route: 065
  3. CYPROHEPTADINE. [Suspect]
     Active Substance: CYPROHEPTADINE
     Route: 065
  4. DIAZEPAM. [Suspect]
     Active Substance: DIAZEPAM
     Route: 048
  5. IRBESARTAN. [Suspect]
     Active Substance: IRBESARTAN
     Route: 065
  6. CARBAMAZEPINE. [Suspect]
     Active Substance: CARBAMAZEPINE
     Route: 065
  7. AMLODIPINE [Suspect]
     Active Substance: AMLODIPINE BESYLATE
     Route: 065

REACTIONS (3)
  - Drug prescribing error [Unknown]
  - Fall [Unknown]
  - Femoral neck fracture [Unknown]
